FAERS Safety Report 5206025-0 (Version None)
Quarter: 2007Q1

REPORT INFORMATION
  Report Type: 
  Country: None (occurrence: None)
  Receive Date: 20070111
  Receipt Date: 20070104
  Transmission Date: 20070707
  Serious: Yes (Other)
  Sender: FDA-Public Use
  Company Number: GB-MERCK-0701GBR00048

PATIENT
  Age: 50 Year
  Sex: Female

DRUGS (9)
  1. SINGULAIR [Suspect]
     Indication: ASTHMA
     Route: 048
     Dates: start: 20061211, end: 20061212
  2. SINGULAIR [Suspect]
     Route: 065
  3. ALENDRONATE SODIUM [Concomitant]
     Indication: OSTEOPOROSIS PROPHYLAXIS
     Route: 048
  4. AMINOPHYLLINE [Concomitant]
     Indication: ASTHMA
     Route: 048
  5. AMILORIDE HYDROCHLORIDE AND HYDROCHLOROTHIAZIDE [Concomitant]
     Route: 065
  6. DOTHIEPIN HYDROCHLORIDE [Concomitant]
     Indication: SLEEP DISORDER
     Route: 048
  7. HYDROXYZINE HYDROCHLORIDE [Concomitant]
     Route: 065
  8. METFORMIN [Concomitant]
     Route: 065
  9. PREDNISOLONE [Concomitant]
     Indication: ASTHMA PROPHYLAXIS
     Route: 048

REACTIONS (1)
  - DYSPNOEA [None]
